FAERS Safety Report 16007297 (Version 1)
Quarter: 2019Q1

REPORT INFORMATION
  Report Type: Spontaneous
  Country: US (occurrence: US)
  Receive Date: 20190226
  Receipt Date: 20190226
  Transmission Date: 20190418
  Serious: Yes (Other)
  Sender: FDA-Public Use
  Company Number: US-BAYER-2019-039838

PATIENT
  Age: 59 Year
  Sex: Female
  Weight: 88 kg

DRUGS (1)
  1. BAYER ASPIRIN [Suspect]
     Active Substance: ASPIRIN
     Dosage: 1 DF
     Route: 048

REACTIONS (3)
  - Throat tightness [Unknown]
  - Hemiparesis [Unknown]
  - Anaphylactic shock [Unknown]
